FAERS Safety Report 4870567-8 (Version None)
Quarter: 2006Q1

REPORT INFORMATION
  Report Type: 
  Country: None (occurrence: None)
  Receive Date: 20060103
  Receipt Date: 20051220
  Transmission Date: 20060701
  Serious: Yes (Other)
  Sender: FDA-Public Use
  Company Number: PHHO2005JP19900

PATIENT
  Age: 35 Year
  Sex: Male
  Weight: 90 kg

DRUGS (4)
  1. DIOVAN [Suspect]
     Indication: HYPERTENSION
     Dosage: 40 MG, QD
     Route: 048
     Dates: start: 20040729, end: 20040901
  2. DIOVAN [Suspect]
     Dosage: 80 MG, QD
     Route: 048
     Dates: start: 20040902
  3. NORVASC [Concomitant]
     Indication: HYPERTENSION
  4. RIZE [Concomitant]
     Indication: INSOMNIA

REACTIONS (5)
  - FOLLICULITIS [None]
  - GALLBLADDER POLYP [None]
  - INFLUENZA [None]
  - POLYPECTOMY [None]
  - UPPER RESPIRATORY TRACT INFECTION [None]
